FAERS Safety Report 23503462 (Version 1)
Quarter: 2024Q1

REPORT INFORMATION
  Report Type: Report from Study
  Country: GB (occurrence: GB)
  Receive Date: 20240208
  Receipt Date: 20240208
  Transmission Date: 20240410
  Serious: Yes (Other)
  Sender: FDA-Public Use
  Company Number: GB-ABBVIE-5624292

PATIENT
  Sex: Female

DRUGS (1)
  1. HUMIRA [Suspect]
     Active Substance: ADALIMUMAB
     Indication: Spinal osteoarthritis
     Dosage: FORM STRENGTH: 40 MILLIGRAM
     Route: 058

REACTIONS (1)
  - Chemotherapy [Unknown]
